FAERS Safety Report 14568707 (Version 1)
Quarter: 2018Q1

REPORT INFORMATION
  Report Type: Spontaneous
  Country: US (occurrence: US)
  Receive Date: 20180223
  Receipt Date: 20180223
  Transmission Date: 20180509
  Serious: No
  Sender: FDA-Public Use
  Company Number: US-LYNE LABORATORIES INC.-2042501

PATIENT
  Age: 58 Year
  Sex: Male

DRUGS (1)
  1. FLUOCINOLONE ACETONIDE TOPICAL OIL, 0.01% (BODY OIL) [Suspect]
     Active Substance: FLUOCINOLONE ACETONIDE
     Indication: PRECANCEROUS SKIN LESION
     Route: 061
     Dates: start: 20180108

REACTIONS (1)
  - Accidental overdose [Unknown]
